FAERS Safety Report 8486461 (Version 3)
Quarter: 2012Q4

REPORT INFORMATION
  Report Type: 
  Country: US (occurrence: US)
  Receive Date: 20120402
  Receipt Date: 20120830
  Transmission Date: 20130627
  Serious: Yes (Other)
  Sender: FDA-Public Use
  Company Number: US-BAYER-2012-028629

PATIENT
  Age: 20 Year
  Sex: Female
  Weight: 61.22 kg

DRUGS (12)
  1. YAZ [Suspect]
     Indication: ACNE
     Dosage: UNK
     Dates: start: 200711, end: 201112
  2. YAZ [Suspect]
     Indication: PREMENSTRUAL SYNDROME
  3. YAZ [Suspect]
     Indication: DYSMENORRHOEA
  4. BEYAZ [Suspect]
     Indication: CONTRACEPTION
  5. ANTI-ACNE PREPARATIONS [Concomitant]
     Route: 061
  6. WOMEN^S VITAMINS [Concomitant]
     Dosage: daily
     Route: 048
  7. PROTONIX [Concomitant]
     Route: 048
  8. PRILOSEC [Concomitant]
     Indication: GASTRITIS
     Route: 048
  9. NSAID^S [Concomitant]
     Dosage: UNK UNK, PRN
     Route: 048
  10. PEPCID [Concomitant]
     Dosage: UNK UNK, PRN
     Route: 048
  11. ANTIMIGRAINE PREPARATIONS [Concomitant]
     Dosage: UNK UNK, PRN
  12. VITAMIN C [Concomitant]
     Dosage: UNK UNK, PRN

REACTIONS (10)
  - Cholecystitis [None]
  - Discomfort [None]
  - Pain [None]
  - Cholecystitis chronic [None]
  - Pain [None]
  - Injury [None]
  - General physical health deterioration [None]
  - Emotional distress [None]
  - Anxiety [None]
  - Mental disorder [None]
